FAERS Safety Report 8472209-1 (Version None)
Quarter: 2012Q2

REPORT INFORMATION
  Report Type: 
  Country: None (occurrence: None)
  Receive Date: 20120627
  Receipt Date: 20120615
  Transmission Date: 20120825
  Serious: Yes (Hospitalization, Other)
  Sender: FDA-Public Use
  Company Number: US-ELI_LILLY_AND_COMPANY-US201012001406

PATIENT
  Sex: Female

DRUGS (7)
  1. FORTEO [Suspect]
     Dosage: 20 UG, QD
  2. FORTEO [Suspect]
     Dosage: 20 UG, QD
  3. COREG [Concomitant]
  4. NAMENDA [Concomitant]
  5. SYNTHROID [Concomitant]
  6. FORTEO [Suspect]
     Dosage: 20 UG, QD
  7. FORTEO [Suspect]
     Indication: OSTEOPOROSIS
     Dosage: 20 UG, DAILY (1/D)

REACTIONS (6)
  - VENOUS INJURY [None]
  - DEMENTIA [None]
  - CARDIAC PACEMAKER INSERTION [None]
  - INJECTION SITE HAEMATOMA [None]
  - GAIT DISTURBANCE [None]
  - FALL [None]
